FAERS Safety Report 7708310-7 (Version None)
Quarter: 2011Q3

REPORT INFORMATION
  Report Type: 
  Country: None (occurrence: None)
  Receive Date: 20110825
  Receipt Date: 20110815
  Transmission Date: 20111222
  Serious: No
  Sender: FDA-Public Use
  Company Number: US-BIOGENIDEC-2011BI031173

PATIENT
  Age: 40 Year
  Sex: Female

DRUGS (4)
  1. AVONEX [Suspect]
     Indication: MULTIPLE SCLEROSIS
     Route: 030
     Dates: start: 20110712
  2. LYRICA [Concomitant]
     Indication: HEADACHE
     Dates: start: 20070101
  3. LYRICA [Concomitant]
     Indication: OPTIC NEURITIS
     Dates: start: 20070101
  4. MELOXICAM [Concomitant]
     Indication: ARTHRITIS

REACTIONS (9)
  - DIZZINESS [None]
  - FAECES PALE [None]
  - DYSURIA [None]
  - JOINT SWELLING [None]
  - ASTHENIA [None]
  - PALLOR [None]
  - INFLUENZA [None]
  - POLLAKIURIA [None]
  - RASH MACULAR [None]
